FAERS Safety Report 8349489-6 (Version None)
Quarter: 2012Q2

REPORT INFORMATION
  Report Type: 
  Country: None (occurrence: None)
  Receive Date: 20120510
  Receipt Date: 20100924
  Transmission Date: 20120825
  Serious: No
  Sender: FDA-Public Use
  Company Number: US-TEVA-2010005128

PATIENT
  Sex: Female
  Weight: 99.426 kg

DRUGS (7)
  1. NUVIGIL [Suspect]
     Indication: ASTHENIA
     Dosage: 150 MILLIGRAM;
     Route: 048
     Dates: start: 20100916, end: 20100922
  2. INDERAL [Concomitant]
     Indication: BLOOD PRESSURE
     Dates: start: 20050101
  3. AMITRIPTYLINE HCL [Concomitant]
     Indication: SLEEP DISORDER
     Dates: start: 20090101
  4. AVANDIA [Concomitant]
     Indication: DIABETES MELLITUS
     Dates: start: 20070101
  5. DURAGESIC-100 [Concomitant]
  6. INDERAL [Concomitant]
     Indication: MIGRAINE
  7. ONGLYZA [Concomitant]
     Indication: DIABETES MELLITUS
     Dates: start: 20100201

REACTIONS (1)
  - DIARRHOEA [None]
